FAERS Safety Report 18103707 (Version 1)
Quarter: 2020Q3

REPORT INFORMATION
  Report Type: Spontaneous
  Country: US (occurrence: US)
  Receive Date: 20200803
  Receipt Date: 20200803
  Transmission Date: 20201103
  Serious: Yes (Other)
  Sender: FDA-Public Use
  Company Number: US-PFIZER INC-2020292161

PATIENT
  Age: 71 Year
  Sex: Female
  Weight: 61.69 kg

DRUGS (1)
  1. XANAX [Suspect]
     Active Substance: ALPRAZOLAM
     Dosage: 0.25 MG, 3X/DAY (3 TIMES A DAY AS NEEDED)
     Route: 048

REACTIONS (6)
  - Sleep disorder [Unknown]
  - Malaise [Unknown]
  - Fatigue [Unknown]
  - Urinary tract infection [Unknown]
  - Pain [Unknown]
  - White blood cell count abnormal [Unknown]
